FAERS Safety Report 18570277 (Version 1)
Quarter: 2020Q4

REPORT INFORMATION
  Report Type: Spontaneous
  Country: US (occurrence: US)
  Receive Date: 20201202
  Receipt Date: 20201202
  Transmission Date: 20210114
  Serious: Yes (Hospitalization, Other)
  Sender: FDA-Public Use
  Company Number: None

PATIENT
  Age: 50 Year
  Sex: Male

DRUGS (2)
  1. VANCOMYCIN (VANCOMYCIN HCL 1.5GM/VIL INJ) [Suspect]
     Active Substance: VANCOMYCIN
     Indication: BACTERAEMIA
     Dates: start: 20201003, end: 20201009
  2. METOCLOPRAMIDE (METOCLOPRAMIDE HCL 5MG/ML INJ) [Suspect]
     Active Substance: METOCLOPRAMIDE HYDROCHLORIDE
     Dosage: ?          OTHER ROUTE:IV?
     Dates: start: 20201012, end: 20201016

REACTIONS (3)
  - Rash [None]
  - Acute kidney injury [None]
  - Pyrexia [None]
